FAERS Safety Report 24194881 (Version 1)
Quarter: 2024Q3

REPORT INFORMATION
  Report Type: Spontaneous
  Country: US (occurrence: US)
  Receive Date: 20240809
  Receipt Date: 20240809
  Transmission Date: 20241016
  Serious: Yes (Other)
  Sender: STANDARD HOMEOPATHIC
  Company Number: US-Standard Homeopathic-2160243

PATIENT
  Age: 23 Month
  Sex: Female

DRUGS (1)
  1. HOMEOPATHICS [Suspect]
     Active Substance: HOMEOPATHICS
     Indication: Nasopharyngitis
     Route: 048

REACTIONS (1)
  - Seizure [Unknown]
